FAERS Safety Report 6107821-8 (Version None)
Quarter: 2009Q1

REPORT INFORMATION
  Report Type: 
  Country: None (occurrence: None)
  Receive Date: 20090309
  Receipt Date: 20090228
  Transmission Date: 20090719
  Serious: Yes (Death)
  Sender: FDA-Public Use
  Company Number: Z0000630A

PATIENT
  Age: 55 Year
  Sex: Male
  Weight: 72.1 kg

DRUGS (2)
  1. TOPOTECAN [Suspect]
     Indication: NEOPLASM
     Dosage: 4MG SEE DOSAGE TEXT
     Route: 048
     Dates: start: 20081125, end: 20081209
  2. PAZOPANIB [Suspect]
     Indication: NEOPLASM
     Dosage: 800MG PER DAY
     Route: 048
     Dates: start: 20081126, end: 20081212

REACTIONS (1)
  - PULMONARY HAEMORRHAGE [None]
